FAERS Safety Report 5107879-9 (Version None)
Quarter: 2006Q3

REPORT INFORMATION
  Report Type: 
  Country: None (occurrence: None)
  Receive Date: 20060919
  Receipt Date: 20060809
  Transmission Date: 20061208
  Serious: Yes (Other)
  Sender: FDA-Public Use
  Company Number: DEWYE616709AUG06

PATIENT
  Sex: Female

DRUGS (2)
  1. ENBREL [Suspect]
     Indication: RHEUMATOID ARTHRITIS
     Route: 058
     Dates: start: 20021101, end: 20060101
  2. ENBREL [Suspect]
     Route: 058
     Dates: start: 20060101, end: 20060701

REACTIONS (1)
  - MYELOFIBROSIS [None]
